FAERS Safety Report 10550776 (Version 1)
Quarter: 2014Q4

REPORT INFORMATION
  Report Type: Spontaneous
  Country: NL (occurrence: None)
  Receive Date: 20141027
  Receipt Date: 20141027
  Transmission Date: 20150529
  Serious: Yes (Disabling)
  Sender: FDA-Public Use
  Company Number: 20142181

PATIENT
  Age: 42 Year
  Sex: Female

DRUGS (5)
  1. METOJECT [Suspect]
     Active Substance: METHOTREXATE SODIUM
     Indication: PSORIATIC ARTHROPATHY
     Route: 030
     Dates: start: 2005
  2. METHOTREXATE [Suspect]
     Active Substance: METHOTREXATE
     Indication: PSORIATIC ARTHROPATHY
     Route: 048
     Dates: start: 2005
  3. DOVOBET GEL (BETAMETHASONE DIPROPIONATE, CALCIPOTRIOL) [Concomitant]
  4. SUMATRIPTAN (SUMATRIPTAN) [Concomitant]
     Active Substance: SUMATRIPTAN
  5. MIRENA (LEVONORGESTREL) [Concomitant]

REACTIONS (1)
  - Deafness [None]

NARRATIVE: CASE EVENT DATE: 20130104
